FAERS Safety Report 24533600 (Version 1)
Quarter: 2024Q4

REPORT INFORMATION
  Report Type: Spontaneous
  Country: US (occurrence: None)
  Receive Date: 20241021
  Receipt Date: 20241021
  Transmission Date: 20250114
  Serious: Yes (Life-Threatening)
  Sender: Public
  Company Number: None

PATIENT
  Age: 60 Year
  Sex: Male
  Weight: 113.58 kg

DRUGS (1)
  1. ETOPOSIDE [Suspect]
     Active Substance: ETOPOSIDE
     Indication: Lung neoplasm malignant
     Dosage: FREQUENCY : DAILY;?
     Route: 041
     Dates: start: 20241014, end: 20241014

REACTIONS (3)
  - Erythema [None]
  - Hyperhidrosis [None]
  - Muscle spasms [None]

NARRATIVE: CASE EVENT DATE: 20241021
